FAERS Safety Report 9564823 (Version 1)
Quarter: 2013Q3

REPORT INFORMATION
  Report Type: Report from Study
  Country: CA (occurrence: CA)
  Receive Date: 20130930
  Receipt Date: 20130930
  Transmission Date: 20140515
  Serious: Yes (Hospitalization)
  Sender: FDA-Public Use
  Company Number: CA-JNJFOC-20130913826

PATIENT
  Age: 80 Year
  Sex: Male

DRUGS (10)
  1. SIMPONI [Suspect]
     Indication: RHEUMATOID ARTHRITIS
     Route: 058
     Dates: start: 20130724, end: 20130821
  2. MTX [Concomitant]
     Route: 048
  3. PLAQUENIL [Concomitant]
     Route: 048
  4. TECTA [Concomitant]
     Route: 048
  5. BISOPROLOL [Concomitant]
     Route: 048
  6. FOLIC ACID [Concomitant]
     Route: 048
  7. SUCRALFATE [Concomitant]
     Route: 048
  8. CRESTOR [Concomitant]
     Route: 065
  9. PLAVIX [Concomitant]
     Route: 065
  10. SALAZOPYRIN [Concomitant]
     Route: 065

REACTIONS (1)
  - Lung neoplasm malignant [Unknown]
